FAERS Safety Report 9912687 (Version 1)
Quarter: 2014Q1

REPORT INFORMATION
  Report Type: Spontaneous
  Country: IT (occurrence: None)
  Receive Date: 20140214
  Receipt Date: 20140214
  Transmission Date: 20141002
  Serious: Yes (Hospitalization)
  Sender: FDA-Public Use
  Company Number: 2014AP001233

PATIENT
  Age: 74 Year
  Sex: Male

DRUGS (4)
  1. LEVOFLOXACIN (LEVOFLOXACIN) [Suspect]
     Indication: PNEUMONIA BACTERIAL
     Dates: start: 20130302, end: 20130306
  2. COUMADIN [Suspect]
     Dates: start: 20120308, end: 20130308
  3. CARDICOR (BISOPROLOL FUMARATE) [Concomitant]
  4. ZOLOFT (SERTRALINE HYDROCHLORIDE) [Concomitant]

REACTIONS (3)
  - Drug interaction [None]
  - Haematuria [None]
  - International normalised ratio increased [None]
